FAERS Safety Report 4493322-X (Version None)
Quarter: 2004Q4

REPORT INFORMATION
  Report Type: 
  Country: None (occurrence: None)
  Receive Date: 20041102
  Receipt Date: 20041018
  Transmission Date: 20050328
  Serious: Yes (Hospitalization)
  Sender: FDA-Public Use
  Company Number: S04-USA-02672-01

PATIENT
  Age: 62 Year
  Sex: Female
  Weight: 120.2032 kg

DRUGS (15)
  1. LEXAPRO [Suspect]
     Indication: DEPRESSION
     Dosage: 15 MG QD PO
     Route: 048
     Dates: end: 20040414
  2. LEXAPRO [Suspect]
     Indication: DEPRESSION
     Dosage: 10 MG QOD PO
     Route: 048
     Dates: start: 20040101
  3. LEXAPRO [Suspect]
     Indication: DEPRESSION
     Dosage: 7.5 MG QOD PO
     Route: 048
     Dates: start: 20040101
  4. LEXAPRO [Suspect]
     Indication: DEPRESSION
     Dosage: 10 MG QD PO
     Route: 048
     Dates: start: 20040415, end: 20040422
  5. LEXAPRO [Suspect]
     Indication: DEPRESSION
     Dosage: 5 MG QD PO
     Route: 048
     Dates: start: 20040423, end: 20040101
  6. LEXAPRO [Suspect]
     Indication: DEPRESSION
     Dosage: 2.5 MG QD PO
     Route: 048
     Dates: start: 20031101
  7. LEXAPRO [Suspect]
     Indication: DEPRESSION
  8. CECLOR [Suspect]
     Indication: URINARY TRACT INFECTION
     Dates: start: 20040401, end: 20040401
  9. LANOXIN [Concomitant]
  10. COZAAR [Concomitant]
  11. TENORMIN [Concomitant]
  12. MAXZIDE [Concomitant]
  13. PRILOSEC [Concomitant]
  14. PERCOCET [Concomitant]
  15. DIAZEPAM [Concomitant]

REACTIONS (13)
  - ABDOMINAL DISTENSION [None]
  - BLOOD GLUCOSE INCREASED [None]
  - CONSTIPATION [None]
  - DIARRHOEA [None]
  - DIVERTICULUM [None]
  - DRUG INTERACTION [None]
  - FATIGUE [None]
  - GLOSSODYNIA [None]
  - HYPERSOMNIA [None]
  - PYREXIA [None]
  - TONGUE COATED [None]
  - URINARY TRACT INFECTION [None]
  - WEIGHT DECREASED [None]
